FAERS Safety Report 7859934-8 (Version None)
Quarter: 2011Q4

REPORT INFORMATION
  Report Type: 
  Country: None (occurrence: None)
  Receive Date: 20111025
  Receipt Date: 20111012
  Transmission Date: 20120403
  Serious: Yes (Other)
  Sender: FDA-Public Use
  Company Number: JP-2011-11568

PATIENT
  Age: 85 Year
  Sex: Male
  Weight: 60 kg

DRUGS (13)
  1. CINAL (ASCORBIC ACID, CALCIUM PANTOTHENATE) [Concomitant]
  2. EPOGIN INJ. 1500,3000 (EPOETIN BETA) INJECTION [Suspect]
     Indication: NEPHROGENIC ANAEMIA
     Dosage: 3000 IU, TID, INTRAVENOUS, 3000 IU, TID, INTRAVENOUS
     Route: 042
     Dates: start: 20110916
  3. EPOGIN INJ. 1500,3000 (EPOETIN BETA) INJECTION [Suspect]
     Indication: NEPHROGENIC ANAEMIA
     Dosage: 3000 IU, TID, INTRAVENOUS, 3000 IU, TID, INTRAVENOUS
     Route: 042
     Dates: end: 20110629
  4. LANSOPRAZOLE [Suspect]
     Indication: GASTRIC ULCER
     Dosage: 30 MG MILLIGRAM(S), QD, ORAL, 15 MG MILLIGRAM(S), QD, ORAL
     Route: 048
     Dates: start: 20110907
  5. LANSOPRAZOLE [Suspect]
     Indication: GASTRIC ULCER
     Dosage: 30 MG MILLIGRAM(S), QD, ORAL, 15 MG MILLIGRAM(S), QD, ORAL
     Route: 048
     Dates: end: 20110808
  6. OXAROL (MAXACALCITOL) [Concomitant]
  7. PROMAC (POLAPREZINC) [Concomitant]
  8. MICARDIS [Concomitant]
  9. SODIUM ALGINATE CALCIUM GLUCONATE INJ [Concomitant]
  10. FOSRENOL (LANTHANUM CARBONATE HYDRATE) [Concomitant]
  11. NESP (DARBEPOETIN) [Concomitant]
  12. PLETAL [Suspect]
     Indication: ARTERIOSCLEROSIS OBLITERANS
     Dosage: 100 MG MILLIGRAM(S), BID, ORAL
     Route: 048
     Dates: start: 20110425, end: 20110805
  13. AMLODIN OD (AMLODIPINE BESILATE) [Concomitant]

REACTIONS (4)
  - DUODENAL ULCER [None]
  - MYELODYSPLASTIC SYNDROME [None]
  - APLASIA PURE RED CELL [None]
  - GASTROINTESTINAL HAEMORRHAGE [None]
